FAERS Safety Report 7706835-1 (Version None)
Quarter: 2011Q3

REPORT INFORMATION
  Report Type: 
  Country: None (occurrence: None)
  Receive Date: 20110824
  Receipt Date: 20110810
  Transmission Date: 20111222
  Serious: Yes (Other)
  Sender: FDA-Public Use
  Company Number: US-GLAXOSMITHKLINE-A0817839A

PATIENT
  Age: 57 Year
  Sex: Female
  Weight: 154.1 kg

DRUGS (5)
  1. LASIX [Concomitant]
  2. POTASSIUM CHLORIDE [Concomitant]
  3. LISINOPRIL [Concomitant]
  4. AVANDIA [Suspect]
     Indication: DIABETES MELLITUS
     Dosage: 4MG PER DAY
     Route: 048
     Dates: start: 19990801, end: 20020101
  5. ZESTRIL [Concomitant]

REACTIONS (2)
  - SILENT MYOCARDIAL INFARCTION [None]
  - CHEST PAIN [None]
